FAERS Safety Report 11967167 (Version 3)
Quarter: 2016Q1

REPORT INFORMATION
  Report Type: Spontaneous
  Country: PT (occurrence: PT)
  Receive Date: 20160127
  Receipt Date: 20160226
  Transmission Date: 20160526
  Serious: Yes (Death)
  Sender: FDA-Public Use
  Company Number: PT-ASTRAZENECA-2016SE08086

PATIENT
  Age: 65 Year
  Sex: Male
  Weight: 91 kg

DRUGS (10)
  1. BRILIQUE [Suspect]
     Active Substance: TICAGRELOR
     Route: 048
  2. MIDAZOLAM [Concomitant]
     Active Substance: MIDAZOLAM\MIDAZOLAM HYDROCHLORIDE
     Route: 042
  3. ENOXAPARIN [Concomitant]
     Active Substance: ENOXAPARIN
     Route: 042
  4. NOREPINEPHRINE [Concomitant]
     Active Substance: NOREPINEPHRINE\NOREPINEPHRINE BITARTRATE
     Dosage: 5CC/H
     Route: 042
  5. ISDN [Concomitant]
     Route: 022
  6. ROCURONIUM [Concomitant]
     Active Substance: ROCURONIUM BROMIDE
  7. LIDOCAINE. [Concomitant]
     Active Substance: LIDOCAINE
     Route: 058
  8. IOMEPROL [Concomitant]
     Active Substance: IOMEPROL
     Route: 022
  9. LIDOCAINE. [Concomitant]
     Active Substance: LIDOCAINE
     Route: 013
  10. METOCLOPRAMIDE. [Concomitant]
     Active Substance: METOCLOPRAMIDE
     Route: 042

REACTIONS (2)
  - Vascular stent thrombosis [Fatal]
  - Intentional product misuse [Fatal]
